FAERS Safety Report 19500468 (Version 1)
Quarter: 2021Q3

REPORT INFORMATION
  Report Type: Spontaneous
  Country: FR (occurrence: FR)
  Receive Date: 20210707
  Receipt Date: 20210707
  Transmission Date: 20211014
  Serious: Yes (Other)
  Sender: FDA-Public Use
  Company Number: FR-ACCORD-230803

PATIENT
  Age: 47 Year
  Sex: Female

DRUGS (7)
  1. CLOZAPINE. [Suspect]
     Active Substance: CLOZAPINE
     Indication: SCHIZOPHRENIA
     Dosage: LONG?TERM TREATMENT
  2. LORAZEPAM. [Concomitant]
     Active Substance: LORAZEPAM
  3. VENLAFAXINE/VENLAFAXINE HYDROCHLORIDE [Concomitant]
     Active Substance: VENLAFAXINE HYDROCHLORIDE
  4. NOCTAMIDE [Concomitant]
     Active Substance: LORMETAZEPAM
  5. TERCIAN [Concomitant]
     Active Substance: CYAMEMAZINE
  6. FUROSEMIDE. [Concomitant]
     Active Substance: FUROSEMIDE
  7. UVEDOSE [Concomitant]
     Active Substance: CHOLECALCIFEROL

REACTIONS (1)
  - Morbihan disease [Not Recovered/Not Resolved]

NARRATIVE: CASE EVENT DATE: 20200717
